FAERS Safety Report 10797879 (Version 1)
Quarter: 2015Q1

REPORT INFORMATION
  Report Type: Report from Study
  Country: US (occurrence: US)
  Receive Date: 20150216
  Receipt Date: 20150216
  Transmission Date: 20150721
  Serious: No
  Sender: FDA-Public Use
  Company Number: US-ABBVIE-14K-163-1234804-00

PATIENT
  Age: 75 Year
  Sex: Female

DRUGS (3)
  1. HUMIRA [Suspect]
     Active Substance: ADALIMUMAB
     Indication: RHEUMATOID ARTHRITIS
     Dates: start: 20140405
  2. GABAPENTIN. [Concomitant]
     Active Substance: GABAPENTIN
     Indication: NEUROPATHY PERIPHERAL
  3. ACID REFLUX MEDICINE [Concomitant]
     Indication: GASTROOESOPHAGEAL REFLUX DISEASE

REACTIONS (11)
  - Hypersomnia [Recovered/Resolved]
  - Headache [Unknown]
  - Eye pain [Not Recovered/Not Resolved]
  - Inappropriate schedule of drug administration [Unknown]
  - Rheumatoid arthritis [Not Recovered/Not Resolved]
  - Feeling abnormal [Unknown]
  - Overdose [Unknown]
  - Vomiting [Unknown]
  - Decreased appetite [Unknown]
  - Somnolence [Unknown]
  - Adverse drug reaction [Not Recovered/Not Resolved]

NARRATIVE: CASE EVENT DATE: 2014
